FAERS Safety Report 6369055-1 (Version None)
Quarter: 2009Q3

REPORT INFORMATION
  Report Type: 
  Country: None (occurrence: None)
  Receive Date: 20090922
  Receipt Date: 20090915
  Transmission Date: 20100115
  Serious: Yes (Hospitalization, Other)
  Sender: FDA-Public Use
  Company Number: PHHY2009GB39389

PATIENT
  Age: 52 Year
  Sex: Male

DRUGS (6)
  1. NEORAL [Suspect]
     Indication: RENAL TRANSPLANT
     Dosage: 75 MG, BID
  2. MYCOPHENOLATE MOFETIL [Concomitant]
     Dosage: 750 MG, BID
  3. LISINOPRIL [Concomitant]
     Dosage: 20 MG
  4. ALLOPURINOL [Concomitant]
     Dosage: 100 MG
  5. LANSOPRAZOLE [Concomitant]
     Dosage: 30 MG
  6. GLUCOSAMINE [Concomitant]
     Dosage: ONE TABLET

REACTIONS (8)
  - ABDOMINAL PAIN [None]
  - CHOLANGITIS [None]
  - CHOLEDOCHOLITHOTOMY [None]
  - CHOLELITHIASIS [None]
  - HEPATIC CYST [None]
  - PANCREATIC SPHINCTEROTOMY [None]
  - PANCREATITIS ACUTE [None]
  - WEIGHT DECREASED [None]
